FAERS Safety Report 5837504-0 (Version None)
Quarter: 2008Q3

REPORT INFORMATION
  Report Type: 
  Country: None (occurrence: None)
  Receive Date: 20080807
  Receipt Date: 20080731
  Transmission Date: 20090109
  Serious: Yes (Hospitalization)
  Sender: FDA-Public Use
  Company Number: FR-BOEHRINGER INGELHEIM GMBH, GERMANY-2008-DE-03066IS

PATIENT
  Sex: Female

DRUGS (10)
  1. FORLAX [Suspect]
     Indication: CONSTIPATION
     Route: 048
     Dates: end: 20070319
  2. SINTROM [Suspect]
     Indication: ARRHYTHMIA
     Route: 048
     Dates: end: 20070319
  3. ATACAND [Suspect]
     Indication: HYPERTENSION
     Route: 048
     Dates: start: 20070216, end: 20070312
  4. ATROVENT [Suspect]
     Indication: ASTHMA
     Dates: end: 20070310
  5. LANSOYL [Suspect]
     Indication: CONSTIPATION
     Route: 048
     Dates: end: 20070319
  6. LASIX [Suspect]
     Indication: HYPERTENSION
     Route: 048
     Dates: end: 20070312
  7. HEMIGOXINE [Concomitant]
  8. ALLOPURINOL [Concomitant]
  9. MOPRAL [Concomitant]
  10. PANTOPRAZOLE SODIUM [Concomitant]

REACTIONS (3)
  - FALL [None]
  - HAEMOTHORAX [None]
  - RIB FRACTURE [None]
